FAERS Safety Report 9731083 (Version 1)
Quarter: 2013Q4

REPORT INFORMATION
  Report Type: Spontaneous
  Country: BR (occurrence: BR)
  Receive Date: 20131203
  Receipt Date: 20131203
  Transmission Date: 20140711
  Serious: Yes (Death, Other)
  Sender: FDA-Public Use
  Company Number: BR-SA-2013SA124626

PATIENT
  Age: 71 Year
  Sex: Male
  Weight: 78 kg

DRUGS (2)
  1. LANTUS [Suspect]
     Indication: DIABETES MELLITUS
     Dosage: 24 TO 26 IU
     Route: 058
     Dates: start: 2005, end: 20131126
  2. CLIKSTAR [Concomitant]
     Indication: DEVICE THERAPY
     Dates: start: 2009, end: 20131126

REACTIONS (5)
  - Cardio-respiratory arrest [Fatal]
  - Fatigue [Fatal]
  - Fluid retention [Fatal]
  - Surgery [Unknown]
  - Local swelling [Recovered/Resolved]
